FAERS Safety Report 4799569-7 (Version None)
Quarter: 2005Q4

REPORT INFORMATION
  Report Type: 
  Country: None (occurrence: None)
  Receive Date: 20051013
  Receipt Date: 20050926
  Transmission Date: 20060501
  Serious: Yes (Other)
  Sender: FDA-Public Use
  Company Number: GBR-2005-0001830

PATIENT
  Age: 44 Year
  Sex: Female

DRUGS (4)
  1. HYDROMORPHONE HCL [Suspect]
     Dosage: SEE IMAGE
  2. MYOLASTAN (TETRAZEPAM) [Concomitant]
  3. TRAZOLAN (TRAZODONE HYDROCHLORIDE) [Concomitant]
  4. STAURODORM (FLURAZEPAM) [Concomitant]

REACTIONS (2)
  - EYE PAIN [None]
  - VISUAL ACUITY REDUCED [None]
